FAERS Safety Report 10057233 (Version 1)
Quarter: 2014Q2

REPORT INFORMATION
  Report Type: Other
  Country: TN (occurrence: TN)
  Receive Date: 20140403
  Receipt Date: 20140403
  Transmission Date: 20141212
  Serious: Yes (Other)
  Sender: FDA-Public Use
  Company Number: TN-BRISTOL-MYERS SQUIBB COMPANY-20584090

PATIENT
  Age: 20 Year
  Sex: Female

DRUGS (3)
  1. HOLOXAN [Suspect]
     Indication: NEUROFIBROSARCOMA
     Dates: start: 201207
  2. ADRIBLASTINE [Suspect]
     Indication: NEUROFIBROSARCOMA
     Dates: start: 201207
  3. MESNA [Concomitant]
     Dates: start: 201207

REACTIONS (1)
  - Pancreatitis acute [Unknown]
